FAERS Safety Report 16900968 (Version 2)
Quarter: 2019Q4

REPORT INFORMATION
  Report Type: Spontaneous
  Country: US (occurrence: US)
  Receive Date: 20191009
  Receipt Date: 20191021
  Transmission Date: 20200122
  Serious: No
  Sender: FDA-Public Use
  Company Number: US-ASCEND THERAPEUTICS US, LLC-2075488

PATIENT
  Age: 52 Year
  Sex: Male

DRUGS (1)
  1. ESTROGEL [Suspect]
     Active Substance: ESTRADIOL
     Indication: TRANSGENDER HORMONAL THERAPY
     Route: 062
     Dates: start: 201611, end: 201908

REACTIONS (1)
  - Off label use [None]
